FAERS Safety Report 15969291 (Version 3)
Quarter: 2019Q3

REPORT INFORMATION
  Report Type: Spontaneous
  Country: US (occurrence: US)
  Receive Date: 20190215
  Receipt Date: 20190729
  Transmission Date: 20191004
  Serious: Yes (Hospitalization, Other)
  Sender: FDA-Public Use
  Company Number: US-ASTRAZENECA-2018SF65343

PATIENT
  Age: 74 Year
  Sex: Female
  Weight: 94.8 kg

DRUGS (39)
  1. NEXIUM [Suspect]
     Active Substance: ESOMEPRAZOLE MAGNESIUM
     Indication: GASTROOESOPHAGEAL REFLUX DISEASE
     Route: 048
     Dates: start: 20140725
  2. DILTIAZEM. [Concomitant]
     Active Substance: DILTIAZEM
  3. DILANTIN [Concomitant]
     Active Substance: PHENYTOIN
  4. ALLOPURINOL. [Concomitant]
     Active Substance: ALLOPURINOL
  5. CEFUROXIME. [Concomitant]
     Active Substance: CEFUROXIME
  6. PHENYTOIN. [Concomitant]
     Active Substance: PHENYTOIN
  7. ACETAMINOPHEN. [Concomitant]
     Active Substance: ACETAMINOPHEN
  8. ROLAIDS [Concomitant]
     Active Substance: CALCIUM CARBONATE\MAGNESIUM HYDROXIDE
  9. PREVACID [Suspect]
     Active Substance: LANSOPRAZOLE
     Indication: GASTROOESOPHAGEAL REFLUX DISEASE
     Route: 065
  10. PREVACID [Suspect]
     Active Substance: LANSOPRAZOLE
     Indication: GASTROOESOPHAGEAL REFLUX DISEASE
     Route: 065
     Dates: start: 2006
  11. AZITHROMYCIN ANHYDROUS. [Concomitant]
     Active Substance: AZITHROMYCIN ANHYDROUS
  12. MIRAPEX [Concomitant]
     Active Substance: PRAMIPEXOLE DIHYDROCHLORIDE
  13. XARELTO [Concomitant]
     Active Substance: RIVAROXABAN
  14. TYLENOL [Concomitant]
     Active Substance: ACETAMINOPHEN
  15. NEXIUM [Suspect]
     Active Substance: ESOMEPRAZOLE MAGNESIUM
     Indication: GASTROOESOPHAGEAL REFLUX DISEASE
     Route: 048
  16. PREVACID [Suspect]
     Active Substance: LANSOPRAZOLE
     Indication: GASTROOESOPHAGEAL REFLUX DISEASE
     Route: 065
     Dates: start: 20161007
  17. PREMARIN [Concomitant]
     Active Substance: ESTROGENS, CONJUGATED
  18. LYRICA [Concomitant]
     Active Substance: PREGABALIN
  19. BENZONATATE. [Concomitant]
     Active Substance: BENZONATATE
  20. NEXIUM [Suspect]
     Active Substance: ESOMEPRAZOLE MAGNESIUM
     Indication: GASTROOESOPHAGEAL REFLUX DISEASE
     Route: 048
     Dates: start: 2006, end: 2016
  21. ZEGERID [Suspect]
     Active Substance: OMEPRAZOLE\SODIUM BICARBONATE
     Indication: GASTROOESOPHAGEAL REFLUX DISEASE
     Route: 065
     Dates: start: 2006
  22. CLONIDINE. [Concomitant]
     Active Substance: CLONIDINE
  23. ZOLPIDEM [Concomitant]
     Active Substance: ZOLPIDEM TARTRATE
  24. WARFARIN [Concomitant]
     Active Substance: WARFARIN
  25. AMLODIPINE [Concomitant]
     Active Substance: AMLODIPINE BESYLATE
  26. AZELASTINE. [Concomitant]
     Active Substance: AZELASTINE HYDROCHLORIDE
  27. BUMETANIDE. [Concomitant]
     Active Substance: BUMETANIDE
  28. SPIRONOLACTONE. [Concomitant]
     Active Substance: SPIRONOLACTONE
  29. CEFPROZIL. [Concomitant]
     Active Substance: CEFPROZIL
  30. FUROSEMIDE. [Concomitant]
     Active Substance: FUROSEMIDE
  31. IPRATROPIUM [Concomitant]
     Active Substance: IPRATROPIUM
  32. HYDROCHLOROTHIAZIDE. [Concomitant]
     Active Substance: HYDROCHLOROTHIAZIDE
  33. PRAMIPEXOLE. [Concomitant]
     Active Substance: PRAMIPEXOLE
  34. QUETIAPINE FUMARATE. [Concomitant]
     Active Substance: QUETIAPINE FUMARATE
  35. ALBUTEROL. [Concomitant]
     Active Substance: ALBUTEROL
  36. CEFACLOR. [Concomitant]
     Active Substance: CEFACLOR
  37. METOLAZONE. [Concomitant]
     Active Substance: METOLAZONE
  38. DOXYCYCLINE. [Concomitant]
     Active Substance: DOXYCYCLINE
  39. SYMBICORT [Concomitant]
     Active Substance: BUDESONIDE\FORMOTEROL FUMARATE DIHYDRATE

REACTIONS (5)
  - Acute kidney injury [Not Recovered/Not Resolved]
  - Chronic kidney disease [Unknown]
  - Renal failure [Unknown]
  - Renal tubular necrosis [Not Recovered/Not Resolved]
  - Rebound acid hypersecretion [Unknown]

NARRATIVE: CASE EVENT DATE: 2015
